FAERS Safety Report 8504823-9 (Version None)
Quarter: 2012Q3

REPORT INFORMATION
  Report Type: 
  Country: None (occurrence: None)
  Receive Date: 20120712
  Receipt Date: 20120702
  Transmission Date: 20120928
  Serious: Yes (Other)
  Sender: FDA-Public Use
  Company Number: RU-009507513-1206USA00745

PATIENT

DRUGS (4)
  1. COMBIVIR [Concomitant]
     Indication: HIV INFECTION
     Dosage: 1 DF, BID
     Route: 048
     Dates: start: 20090917
  2. MK-9039 [Concomitant]
     Indication: PREGNANCY
     Dosage: 1 DF, QID
     Route: 048
     Dates: start: 20120306, end: 20120316
  3. ISENTRESS [Suspect]
     Indication: PREGNANCY
     Dosage: 400 MG, BID
     Route: 048
     Dates: start: 20100830
  4. KALETRA [Concomitant]
     Indication: HIV INFECTION
     Dosage: 2 DF, BID
     Route: 048
     Dates: start: 20090917

REACTIONS (3)
  - ABORTION THREATENED [None]
  - MATERNAL EXPOSURE DURING PREGNANCY [None]
  - PREMATURE SEPARATION OF PLACENTA [None]
